FAERS Safety Report 5876419-9 (Version None)
Quarter: 2008Q3

REPORT INFORMATION
  Report Type: 
  Country: None (occurrence: None)
  Receive Date: 20080908
  Receipt Date: 20080908
  Transmission Date: 20090109
  Serious: Yes (Life-Threatening, Hospitalization, Other)
  Sender: FDA-Public Use
  Company Number: None

PATIENT
  Age: 66 Year
  Sex: Female
  Weight: 56.6996 kg

DRUGS (1)
  1. ENBREL [Suspect]
     Indication: ANKYLOSING SPONDYLITIS
     Dosage: 50 MG/ML WEEKLY CUTANEOUS
     Route: 003
     Dates: start: 20040120, end: 20080831

REACTIONS (3)
  - BACK PAIN [None]
  - GUILLAIN-BARRE SYNDROME [None]
  - INFLUENZA [None]
